FAERS Safety Report 13501755 (Version 2)
Quarter: 2017Q2

REPORT INFORMATION
  Report Type: Report from Study
  Country: None (occurrence: BR)
  Receive Date: 20170502
  Receipt Date: 20170512
  Transmission Date: 20170830
  Serious: Yes (Hospitalization)
  Sender: FDA-Public Use
  Company Number: BR-ABBVIE-17K-020-1959006-00

PATIENT
  Sex: Female

DRUGS (1)
  1. HUMIRA [Suspect]
     Active Substance: ADALIMUMAB
     Indication: RHEUMATOID ARTHRITIS
     Route: 058
     Dates: start: 20120103, end: 2017

REACTIONS (6)
  - Infection [Unknown]
  - Blood glucose decreased [Unknown]
  - Skin lesion [Unknown]
  - Vomiting [Unknown]
  - Peripheral swelling [Unknown]
  - Diarrhoea [Unknown]
